FAERS Safety Report 18359003 (Version 1)
Quarter: 2020Q4

REPORT INFORMATION
  Report Type: Spontaneous
  Country: US (occurrence: US)
  Receive Date: 20201007
  Receipt Date: 20201007
  Transmission Date: 20210114
  Serious: Yes (Hospitalization)
  Sender: FDA-Public Use
  Company Number: None

PATIENT
  Age: 52 Year
  Sex: Male
  Weight: 231.33 kg

DRUGS (2)
  1. KETOROLAC TROMETHAMINE (KETOROLAC TROMETHAMINE 30MG/ML INJ) [Suspect]
     Active Substance: KETOROLAC TROMETHAMINE
     Indication: PAIN
     Route: 041
     Dates: start: 20200829, end: 20200902
  2. HYDROCHLOROTHIAZIDE/LOSARTAN (HYDROCHLOROTHIAZIDE 25MG/LOSARTAN POTASS [Suspect]
     Active Substance: HYDROCHLOROTHIAZIDE\LOSARTAN POTASSIUM
     Indication: HYPERTENSION
     Dosage: ?          OTHER DOSE:25/100 MG;?
     Route: 048
     Dates: start: 20181207

REACTIONS (2)
  - Acute kidney injury [None]
  - Hypertension [None]

NARRATIVE: CASE EVENT DATE: 20200903
